FAERS Safety Report 23800413 (Version 4)
Quarter: 2024Q3

REPORT INFORMATION
  Report Type: Report from Study
  Country: IN (occurrence: IN)
  Receive Date: 20240430
  Receipt Date: 20240903
  Transmission Date: 20241016
  Serious: Yes (Hospitalization)
  Sender: GLAXOSMITHKLINE
  Company Number: IN-GLAXOSMITHKLINE-2024APC038319

PATIENT

DRUGS (1)
  1. MEPOLIZUMAB [Suspect]
     Active Substance: MEPOLIZUMAB
     Indication: Asthma
     Dosage: 100 MG, Q4W
     Route: 058
     Dates: start: 20231205

REACTIONS (9)
  - Chikungunya virus infection [Unknown]
  - H1N1 influenza [Unknown]
  - Arthralgia [Unknown]
  - Vertigo [Unknown]
  - Dyspnoea [Unknown]
  - Malaise [Unknown]
  - Nasopharyngitis [Unknown]
  - Cough [Unknown]
  - Viral infection [Unknown]

NARRATIVE: CASE EVENT DATE: 20240423
